FAERS Safety Report 6122193-0 (Version None)
Quarter: 2009Q1

REPORT INFORMATION
  Report Type: 
  Country: None (occurrence: None)
  Receive Date: 20090316
  Receipt Date: 20090316
  Transmission Date: 20090719
  Serious: Yes (Disabling)
  Sender: FDA-Public Use
  Company Number: None

PATIENT
  Sex: Female
  Weight: 74.3 kg

DRUGS (3)
  1. COUMADIN [Suspect]
     Indication: PULMONARY EMBOLISM
     Dates: start: 20090308, end: 20090312
  2. COUMADIN [Suspect]
  3. COUMADIN [Suspect]

REACTIONS (1)
  - HAEMORRHAGE [None]
